FAERS Safety Report 25469748 (Version 3)
Quarter: 2025Q3

REPORT INFORMATION
  Report Type: Spontaneous
  Country: AR (occurrence: AR)
  Receive Date: 20250623
  Receipt Date: 20250723
  Transmission Date: 20251020
  Serious: No
  Sender: PFIZER
  Company Number: AR-PFIZER INC-202500125245

PATIENT
  Age: 8 Year
  Sex: Female

DRUGS (2)
  1. GENOTROPIN [Suspect]
     Active Substance: SOMATROPIN
     Indication: Short stature
     Dosage: 1 MG, 1X/DAY
     Dates: start: 20250617
  2. SAIZEN [Concomitant]
     Active Substance: SOMATROPIN

REACTIONS (4)
  - Injection site papule [Unknown]
  - Injection site haemorrhage [Unknown]
  - Patient-device incompatibility [Unknown]
  - Device leakage [Unknown]

NARRATIVE: CASE EVENT DATE: 20250617
